FAERS Safety Report 4314871-0 (Version None)
Quarter: 2004Q1

REPORT INFORMATION
  Report Type: 
  Country: None (occurrence: None)
  Receive Date: 20040308
  Receipt Date: 20040223
  Transmission Date: 20041129
  Serious: Yes (Hospitalization)
  Sender: FDA-Public Use
  Company Number: 2004-113341-NL

PATIENT
  Age: 90 Year
  Sex: Male

DRUGS (14)
  1. DANAPAROID SODIUM [Suspect]
     Indication: DISSEMINATED INTRAVASCULAR COAGULATION
     Dosage: 2500 ANTI_XA  INTRAVENOUS (NOS)
     Route: 042
     Dates: start: 20030222, end: 20030304
  2. CARBENIN [Concomitant]
  3. URINASTATIN [Concomitant]
  4. CLINDAMYCIN HYDROCHLORIDE [Concomitant]
  5. GABEXATE MESILATE [Concomitant]
  6. NITRAZEPAM [Concomitant]
  7. METHYLPREDNISOLONE SODIUM SUCCINATE [Concomitant]
  8. ELASPOL [Concomitant]
  9. NEUART [Concomitant]
  10. IMMUNOGLOBULIN HUMAN NORMAL [Concomitant]
  11. OMEPRAZOLE [Concomitant]
  12. INSULIN HUMAN [Concomitant]
  13. FUROSEMIDE [Concomitant]
  14. VECURONIUM BROMIDE [Concomitant]

REACTIONS (5)
  - ANAEMIA [None]
  - DISSEMINATED INTRAVASCULAR COAGULATION [None]
  - HEPATIC FUNCTION ABNORMAL [None]
  - RENAL FAILURE CHRONIC [None]
  - URINARY TRACT INFECTION [None]
